FAERS Safety Report 5373869-4 (Version None)
Quarter: 2007Q2

REPORT INFORMATION
  Report Type: 
  Country: None (occurrence: None)
  Receive Date: 20070628
  Receipt Date: 20070622
  Transmission Date: 20071010
  Serious: Yes (Hospitalization)
  Sender: FDA-Public Use
  Company Number: FR-PFIZER INC-2007045620

PATIENT
  Age: 59 Year
  Sex: Female
  Weight: 39 kg

DRUGS (7)
  1. TRIFLUCAN [Suspect]
     Route: 042
  2. LEXOMIL [Suspect]
     Dosage: DAILY DOSE:3MG
     Route: 048
  3. LOVENOX [Suspect]
     Indication: PROPHYLAXIS
     Dosage: TEXT:4 KU
     Route: 058
  4. NEXIUM [Suspect]
     Route: 048
  5. PARACETAMOL [Suspect]
     Route: 042
  6. EPOETIN [Suspect]
     Dosage: TEXT:3 KU
     Route: 058
     Dates: start: 20070312, end: 20070315
  7. ENOXAPARIN SODIUM [Suspect]

REACTIONS (1)
  - THROMBOCYTHAEMIA [None]
